FAERS Safety Report 15634939 (Version 2)
Quarter: 2018Q4

REPORT INFORMATION
  Report Type: Spontaneous
  Country: JP (occurrence: JP)
  Receive Date: 20181119
  Receipt Date: 20181120
  Transmission Date: 20190205
  Serious: Yes (Hospitalization, Other)
  Sender: FDA-Public Use
  Company Number: JP-BAYER-2018-209730

PATIENT
  Age: 77 Year
  Sex: Female

DRUGS (1)
  1. BAYASPIRIN 100 MG [Suspect]
     Active Substance: ASPIRIN
     Route: 048

REACTIONS (12)
  - Deep vein thrombosis [Recovered/Resolved]
  - Vomiting [Recovered/Resolved]
  - Dysphagia [Recovered/Resolved]
  - Sensory disturbance [Recovered/Resolved]
  - Hemiplegia [Recovered/Resolved]
  - Hemianopia [Recovered/Resolved]
  - Cerebral artery embolism [Recovered/Resolved]
  - Dyslalia [Recovered/Resolved]
  - Facial paralysis [Recovered/Resolved]
  - Vertebral artery occlusion [Recovered/Resolved]
  - Somnolence [Recovered/Resolved]
  - Dizziness [None]
